FAERS Safety Report 8455432-1 (Version None)
Quarter: 2012Q2

REPORT INFORMATION
  Report Type: 
  Country: None (occurrence: None)
  Receive Date: 20120621
  Receipt Date: 20120612
  Transmission Date: 20120825
  Serious: Yes (Other)
  Sender: FDA-Public Use
  Company Number: DE-JNJFOC-20120607168

PATIENT

DRUGS (8)
  1. IDARUBICIN HCL [Suspect]
     Indication: ACUTE MYELOID LEUKAEMIA
     Dosage: DAY 42-56; CONSOLIDATION PHASE
     Route: 065
  2. IDARUBICIN HCL [Suspect]
     Dosage: INDUCTION 1; DAY 1
     Route: 065
  3. CLADRIBINE [Suspect]
     Indication: ACUTE MYELOID LEUKAEMIA
     Dosage: BETWEEN DAYS 42-56; CONSOLIDATION PHASE
     Route: 042
  4. MITOXANTRONE [Suspect]
     Indication: ACUTE MYELOID LEUKAEMIA
     Dosage: INDUCTION 2; DAY 21-28
     Route: 065
  5. CYTARABINE [Suspect]
     Dosage: INDUCTION 2; HIGH DOSE; DAYS 21-28
     Route: 065
  6. CYTARABINE [Suspect]
     Dosage: DAY 42-56 (0.5G/M2), CONSOLIDATION PHASE
     Route: 065
  7. CYTARABINE [Suspect]
     Indication: ACUTE MYELOID LEUKAEMIA
     Dosage: INDUCTION 1; DAY 1
     Route: 065
  8. ETOPOSIDE [Suspect]
     Indication: ACUTE MYELOID LEUKAEMIA
     Dosage: INDUCTION 1; DAY 1
     Route: 065

REACTIONS (1)
  - CARDIAC DISORDER [None]
